FAERS Safety Report 7536936-2 (Version None)
Quarter: 2011Q2

REPORT INFORMATION
  Report Type: 
  Country: None (occurrence: None)
  Receive Date: 20110608
  Receipt Date: 20110608
  Transmission Date: 20111010
  Serious: Yes (Hospitalization)
  Sender: FDA-Public Use
  Company Number: None

PATIENT
  Age: 37 Year
  Sex: Male
  Weight: 94.8018 kg

DRUGS (1)
  1. REVIA [Suspect]
     Indication: ALCOHOLISM
     Dosage: 50 MG, ADMINISTERED ONCE
     Dates: start: 20110525

REACTIONS (5)
  - MUSCULAR WEAKNESS [None]
  - NAUSEA [None]
  - ELECTROCARDIOGRAM ST-T SEGMENT ABNORMAL [None]
  - LOSS OF CONSCIOUSNESS [None]
  - REFUSAL OF TREATMENT BY PATIENT [None]
